FAERS Safety Report 15177582 (Version 1)
Quarter: 2018Q3

REPORT INFORMATION
  Report Type: Report from Study
  Country: US (occurrence: US)
  Receive Date: 20180720
  Receipt Date: 20180720
  Transmission Date: 20181010
  Serious: No
  Sender: FDA-Public Use
  Company Number: US-AMGEN-USASL2018086946

PATIENT
  Age: 68 Year
  Sex: Male

DRUGS (1)
  1. REPATHA [Suspect]
     Active Substance: EVOLOCUMAB
     Indication: HYPERCHOLESTEROLAEMIA
     Dosage: 140 MG, Q2WK
     Route: 065

REACTIONS (9)
  - Rhinorrhoea [Recovering/Resolving]
  - Oropharyngeal pain [Recovering/Resolving]
  - Sinus pain [Unknown]
  - Headache [Recovering/Resolving]
  - Paranasal sinus discomfort [Recovering/Resolving]
  - Disturbance in attention [Recovering/Resolving]
  - Sinus congestion [Recovering/Resolving]
  - Paranasal sinus hypersecretion [Recovering/Resolving]
  - Insomnia [Recovering/Resolving]
